FAERS Safety Report 6549845-2 (Version None)
Quarter: 2010Q1

REPORT INFORMATION
  Report Type: 
  Country: None (occurrence: None)
  Receive Date: 20100125
  Receipt Date: 20100112
  Transmission Date: 20100710
  Serious: Yes (Other)
  Sender: FDA-Public Use
  Company Number: CA-GENENTECH-293478

PATIENT
  Sex: Male
  Weight: 126.5 kg

DRUGS (7)
  1. XOLAIR [Suspect]
     Indication: ASTHMA
     Dosage: 225 MG, Q2W
     Route: 058
     Dates: start: 20080103
  2. XOLAIR [Suspect]
     Dosage: 225 MG, UNK
     Route: 058
     Dates: start: 20090610
  3. XOLAIR [Suspect]
     Dosage: 225 MG, Q2W
     Dates: start: 20090903
  4. XOLAIR [Suspect]
     Dosage: 225 MG, Q2W
     Route: 058
     Dates: start: 20091020
  5. XOLAIR [Suspect]
     Dosage: 225 MG, Q2W
     Route: 058
     Dates: start: 20091103
  6. VENTOLIN [Concomitant]
     Indication: DRUG USE FOR UNKNOWN INDICATION
  7. PREDNISONE TAB [Concomitant]
     Indication: DRUG USE FOR UNKNOWN INDICATION

REACTIONS (9)
  - ASTHMA [None]
  - COUGH [None]
  - DYSPNOEA [None]
  - MIDDLE INSOMNIA [None]
  - PRODUCTIVE COUGH [None]
  - PYREXIA [None]
  - SINUS CONGESTION [None]
  - WEIGHT INCREASED [None]
  - WHEEZING [None]
